FAERS Safety Report 21342838 (Version 1)
Quarter: 2022Q3

REPORT INFORMATION
  Report Type: Spontaneous
  Country: US (occurrence: US)
  Receive Date: 20220916
  Receipt Date: 20220916
  Transmission Date: 20221027
  Serious: Yes (Hospitalization, Other)
  Sender: FDA-Public Use
  Company Number: US-Shilpa Medicare Limited-SML-US-2022-01118

PATIENT
  Age: 48 Year
  Sex: Male

DRUGS (4)
  1. IRINOTECAN [Suspect]
     Active Substance: IRINOTECAN
     Indication: Colon cancer stage IV
     Dosage: TOTAL OF 10 ROUNDS
  2. AVASTIN [Suspect]
     Active Substance: BEVACIZUMAB
     Indication: Colon cancer stage IV
     Dosage: TOTAL OF 10 ROUNDS
  3. FLUOROURACIL [Suspect]
     Active Substance: FLUOROURACIL
     Indication: Colon cancer stage IV
     Dosage: TOTAL OF 10 ROUNDS
  4. LEUCOVORIN [Suspect]
     Active Substance: LEUCOVORIN
     Indication: Colon cancer stage IV
     Dosage: TOTAL OF 10 ROUNDS

REACTIONS (9)
  - Chest discomfort [Unknown]
  - Abdominal pain upper [Unknown]
  - Dysphagia [Unknown]
  - Cough [Unknown]
  - Pneumonia aspiration [Unknown]
  - Oesophagobronchial fistula [Unknown]
  - Enteral nutrition [Unknown]
  - Administration site extravasation [Unknown]
  - Medication error [Unknown]
